FAERS Safety Report 8518048-4 (Version None)
Quarter: 2012Q3

REPORT INFORMATION
  Report Type: 
  Country: None (occurrence: None)
  Receive Date: 20120718
  Receipt Date: 20110824
  Transmission Date: 20120928
  Serious: No
  Sender: FDA-Public Use
  Company Number: US-BRISTOL-MYERS SQUIBB COMPANY-15999584

PATIENT
  Age: 84 Year
  Sex: Male

DRUGS (11)
  1. NIASPAN [Concomitant]
  2. CLONAZEPAM [Concomitant]
     Dosage: 1 DF:1 TO THREE OF THEM A DAY FORMULATION:NERVE PILL CLONAZEPA 0.5MG
  3. NORVASC [Concomitant]
  4. TOPROL-XL [Concomitant]
  5. ASPIRIN [Concomitant]
  6. WARFARIN SODIUM [Suspect]
     Indication: CEREBROVASCULAR ACCIDENT
     Dosage: THEN 5MG ONCE A WEEK
  7. LISINOPRIL [Concomitant]
  8. TYLENOL [Concomitant]
  9. AMIODARONE HCL [Concomitant]
  10. ZETIA [Concomitant]
  11. LIPITOR [Concomitant]

REACTIONS (1)
  - INTERNATIONAL NORMALISED RATIO INCREASED [None]
